FAERS Safety Report 4735330-7 (Version None)
Quarter: 2005Q3

REPORT INFORMATION
  Report Type: 
  Country: None (occurrence: None)
  Receive Date: 20050805
  Receipt Date: 20030317
  Transmission Date: 20060218
  Serious: Yes (Hospitalization, Disabling)
  Sender: FDA-Public Use
  Company Number: PL-ROCHE-334255

PATIENT
  Age: 46 Year
  Sex: Male
  Weight: 73.5 kg

DRUGS (21)
  1. MYCOPHENOLATE MOFETIL [Suspect]
     Route: 048
     Dates: start: 20030104, end: 20041007
  2. MYCOPHENOLATE MOFETIL [Suspect]
     Route: 048
     Dates: start: 20020928
  3. MYCOPHENOLATE MOFETIL [Suspect]
     Route: 048
     Dates: start: 20041008
  4. MYCOPHENOLATE MOFETIL [Suspect]
     Route: 042
     Dates: start: 20021231, end: 20030103
  5. DACLIZUMAB [Suspect]
     Dosage: FOR A TOTAL OF 4 DOSES.
     Route: 042
     Dates: start: 20021011, end: 20021122
  6. DACLIZUMAB [Suspect]
     Route: 042
     Dates: start: 20020928, end: 20020928
  7. OMEPRAZOLE [Concomitant]
     Dates: start: 20030106, end: 20030205
  8. RANITIDINE [Concomitant]
     Dates: start: 20030206
  9. PREDNISONE [Concomitant]
     Dates: start: 20021221
  10. CYCLOSPORINE [Concomitant]
     Dates: start: 20021129
  11. METOPROLOL [Concomitant]
     Dates: start: 20021001
  12. AMLODIPINE [Concomitant]
     Dates: start: 20020928
  13. CLONIDINE HCL [Concomitant]
     Dates: start: 20021001, end: 20030116
  14. INSULIN INFUSION [Concomitant]
     Dates: start: 20021201, end: 20030108
  15. INSULINUM [Concomitant]
     Route: 058
     Dates: start: 20030109
  16. AMOXICILINA / CLAVULANICO [Concomitant]
     Dates: start: 20021230, end: 20021231
  17. DIHYDRALAZINUM [Concomitant]
     Dates: start: 20030505
  18. PRAZOSIN HCL [Concomitant]
     Dates: start: 20040523, end: 20040708
  19. INDAPAMIDE [Concomitant]
     Dates: start: 20030926
  20. ASPIRIN [Concomitant]
     Dates: start: 20030504, end: 20040601
  21. FUROSEMIDE [Concomitant]
     Dates: start: 20040530, end: 20041006

REACTIONS (9)
  - C-REACTIVE PROTEIN INCREASED [None]
  - CANDIDIASIS [None]
  - ENTEROCOCCAL INFECTION [None]
  - HAEMOPHILUS INFECTION [None]
  - OESOPHAGEAL DISORDER [None]
  - OSTEITIS [None]
  - PYREXIA [None]
  - STAPHYLOCOCCAL INFECTION [None]
  - WHITE BLOOD CELL COUNT INCREASED [None]
